FAERS Safety Report 8285720-3 (Version None)
Quarter: 2012Q2

REPORT INFORMATION
  Report Type: 
  Country: None (occurrence: None)
  Receive Date: 20120413
  Receipt Date: 20120404
  Transmission Date: 20120825
  Serious: Yes (Death)
  Sender: FDA-Public Use
  Company Number: US-RB-039061-12

PATIENT
  Age: 55 Year
  Sex: Female

DRUGS (2)
  1. SUBOXONE [Suspect]
     Indication: DRUG DEPENDENCE
     Dosage: UNKNOWN DOSAGE DETAILS - TAPERING DOSES
     Route: 065
     Dates: start: 20110101, end: 20110101
  2. CYMBALTA [Concomitant]
     Indication: DEPRESSION
     Dosage: UNKNOWN DAILY DOSAGE
     Route: 065

REACTIONS (4)
  - COMPLETED SUICIDE [None]
  - GUN SHOT WOUND [None]
  - MARITAL PROBLEM [None]
  - DEPRESSION [None]
